FAERS Safety Report 18923563 (Version 1)
Quarter: 2021Q1

REPORT INFORMATION
  Report Type: Spontaneous
  Country: CN (occurrence: CN)
  Receive Date: 20210222
  Receipt Date: 20210222
  Transmission Date: 20210420
  Serious: Yes (Hospitalization)
  Sender: FDA-Public Use
  Company Number: CN-BAYER-2021-077959

PATIENT
  Age: 87 Year
  Sex: Male
  Weight: 75 kg

DRUGS (2)
  1. AVELOX [Suspect]
     Active Substance: MOXIFLOXACIN HYDROCHLORIDE
     Indication: ANTI-INFECTIVE THERAPY
  2. AVELOX [Suspect]
     Active Substance: MOXIFLOXACIN HYDROCHLORIDE
     Indication: CHRONIC OBSTRUCTIVE PULMONARY DISEASE
     Dosage: 0.4 G, QD
     Route: 041
     Dates: start: 20210208, end: 20210211

REACTIONS (5)
  - Delirium [Recovering/Resolving]
  - Irritability [None]
  - Mental disorder [Recovering/Resolving]
  - Restlessness [None]
  - Confusional state [None]

NARRATIVE: CASE EVENT DATE: 20210210
